FAERS Safety Report 14314822 (Version 2)
Quarter: 2018Q1

REPORT INFORMATION
  Report Type: Spontaneous
  Country: BR (occurrence: BR)
  Receive Date: 20171221
  Receipt Date: 20180219
  Transmission Date: 20180509
  Serious: Yes (Hospitalization)
  Sender: FDA-Public Use
  Company Number: BR-ELI_LILLY_AND_COMPANY-BR201712006377

PATIENT
  Sex: Female

DRUGS (4)
  1. RISPERIDONA [Concomitant]
     Active Substance: RISPERIDONE
     Indication: PRODUCT USED FOR UNKNOWN INDICATION
  2. PROZAC [Suspect]
     Active Substance: FLUOXETINE HYDROCHLORIDE
     Indication: SLEEP DISORDER
  3. OLANZAPINE. [Suspect]
     Active Substance: OLANZAPINE
     Indication: PRODUCT USED FOR UNKNOWN INDICATION
     Dosage: UNK, UNKNOWN
     Route: 065
  4. PROZAC [Suspect]
     Active Substance: FLUOXETINE HYDROCHLORIDE
     Indication: INSOMNIA
     Dosage: 10 MG, UNKNOWN
     Route: 065
     Dates: start: 201708, end: 201709

REACTIONS (10)
  - Confusional state [Not Recovered/Not Resolved]
  - Abnormal behaviour [Unknown]
  - Crying [Unknown]
  - Abnormal behaviour [Not Recovered/Not Resolved]
  - Posture abnormal [Recovering/Resolving]
  - Off label use [Recovered/Resolved]
  - Autophobia [Unknown]
  - Atrophy [Not Recovered/Not Resolved]
  - Delusion [Not Recovered/Not Resolved]
  - Mental disorder [Unknown]
